FAERS Safety Report 6958646-2 (Version None)
Quarter: 2010Q3

REPORT INFORMATION
  Report Type: 
  Country: None (occurrence: None)
  Receive Date: 20100830
  Receipt Date: 20100830
  Transmission Date: 20110219
  Serious: Yes (Disabling)
  Sender: FDA-Public Use
  Company Number: None

PATIENT
  Age: 18 Year
  Sex: Male
  Weight: 128.8216 kg

DRUGS (2)
  1. ABILIFY [Suspect]
     Indication: SCHIZOPHRENIA
     Dosage: 30MG QHS PO
     Route: 048
     Dates: start: 20100207, end: 20100208
  2. RISPERIDONE [Suspect]
     Indication: SCHIZOPHRENIA
     Dosage: 4MG QHS PO
     Route: 048
     Dates: start: 20100207, end: 20100208

REACTIONS (2)
  - DYSPNOEA [None]
  - HYPOAESTHESIA ORAL [None]
